FAERS Safety Report 10925180 (Version 2)
Quarter: 2015Q2

REPORT INFORMATION
  Report Type: Spontaneous
  Country: US (occurrence: US)
  Receive Date: 20150318
  Receipt Date: 20150524
  Transmission Date: 20150821
  Serious: No
  Sender: FDA-Public Use
  Company Number: US-JNJFOC-20140401271

PATIENT
  Age: 40 Year
  Sex: Female
  Weight: 108.86 kg

DRUGS (3)
  1. NIZORAL A-D [Suspect]
     Active Substance: KETOCONAZOLE
     Indication: DANDRUFF
     Dosage: A DIME SIZE TO A NICKLE SIZE, A COUPLE OF TIMES, STARTED TAKING THE PRODUCT A COUPLE OF WEEKS AGO
     Route: 061
     Dates: start: 2014, end: 20140328
  2. DEPAKOTE [Concomitant]
     Active Substance: DIVALPROEX SODIUM
     Indication: BIPOLAR DISORDER
     Dosage: 1000 MG 4 PILLS 2 TIMES A DAY
     Route: 065
  3. NIZORAL A-D [Suspect]
     Active Substance: KETOCONAZOLE
     Indication: SKIN EXFOLIATION
     Dosage: A DIME SIZE TO A NICKLE SIZE, A COUPLE OF TIMES, STARTED TAKING THE PRODUCT A COUPLE OF WEEKS AGO
     Route: 061
     Dates: start: 2014, end: 20140328

REACTIONS (2)
  - Application site ulcer [Recovering/Resolving]
  - Erythema [Recovering/Resolving]
